FAERS Safety Report 17271209 (Version 1)
Quarter: 2020Q1

REPORT INFORMATION
  Report Type: Other
  Country: FR (occurrence: FR)
  Receive Date: 20200115
  Receipt Date: 20200115
  Transmission Date: 20200409
  Serious: Yes (Death)
  Sender: FDA-Public Use
  Company Number: FR-SUNRISE PHARMACEUTICAL, INC.-2078990

PATIENT
  Age: 37 Year
  Sex: Female

DRUGS (5)
  1. MEPROBAMATE/ACEPROMETAZINE [Concomitant]
     Route: 065
  2. SODIUM VALPROATE [Concomitant]
     Active Substance: VALPROATE SODIUM
     Route: 065
  3. BUPRENORPHINE. [Suspect]
     Active Substance: BUPRENORPHINE
     Route: 065
  4. HYDROXYZINE HYDROCHLORIDE. [Suspect]
     Active Substance: HYDROXYZINE HYDROCHLORIDE
     Indication: PRODUCT USED FOR UNKNOWN INDICATION
     Route: 065
  5. NORBUPRENORPHINE [Suspect]
     Active Substance: NORBUPRENORPHINE
     Route: 065

REACTIONS (6)
  - Altered state of consciousness [Fatal]
  - Prescription drug used without a prescription [Unknown]
  - Toxicity to various agents [Fatal]
  - Respiratory depression [Fatal]
  - Intentional overdose [Fatal]
  - Asphyxia [Fatal]
